FAERS Safety Report 7956557-7 (Version None)
Quarter: 2011Q4

REPORT INFORMATION
  Report Type: 
  Country: None (occurrence: None)
  Receive Date: 20111205
  Receipt Date: 20111125
  Transmission Date: 20120403
  Serious: Yes (Other)
  Sender: FDA-Public Use
  Company Number: US-BAYER-2011-057013

PATIENT
  Age: 24 Year
  Sex: Female
  Weight: 66.667 kg

DRUGS (7)
  1. MORPHINE [Concomitant]
     Dosage: UNK
     Route: 042
     Dates: start: 20090903
  2. PERCOCET [OXYCODONE HYDROCHLORIDE,OXYCODONE TEREPHTHALATE,PARACETA [Concomitant]
     Dosage: 10 MG, UNK
     Dates: start: 20090903
  3. YAZ [Suspect]
     Indication: PREMENSTRUAL SYNDROME
  4. TRI-SPRINTEC [Concomitant]
     Indication: MENSTRUATION IRREGULAR
  5. ZOFRAN [Concomitant]
     Dosage: 4 MG, UNK
     Route: 042
     Dates: start: 20090903
  6. YAZ [Suspect]
     Indication: CONTRACEPTION
     Dosage: UNK
     Dates: start: 20090301, end: 20090701
  7. TRI-SPRINTEC [Concomitant]
     Indication: CONTRACEPTION
     Dosage: UNK
     Route: 048

REACTIONS (4)
  - CHOLECYSTITIS CHRONIC [None]
  - NAUSEA [None]
  - VOMITING [None]
  - ABDOMINAL PAIN [None]
